FAERS Safety Report 5200262-7 (Version None)
Quarter: 2007Q1

REPORT INFORMATION
  Report Type: 
  Country: None (occurrence: None)
  Receive Date: 20070105
  Receipt Date: 20061129
  Transmission Date: 20070707
  Serious: Yes (Other)
  Sender: FDA-Public Use
  Company Number: GB-BOEHRINGER INGELHEIM PHARMACEUTICALS, INC.-2007-BP-00221YA

PATIENT
  Sex: Male

DRUGS (2)
  1. OMNIC OCAS ORODISPERSABLE [Suspect]
     Indication: URINARY RETENTION
     Route: 048
     Dates: start: 20051201, end: 20061130
  2. TILDIEM [Concomitant]
     Dates: start: 20060829

REACTIONS (3)
  - INCORRECT DOSE ADMINISTERED [None]
  - MEDICATION RESIDUE [None]
  - PHARMACEUTICAL PRODUCT COMPLAINT [None]
